FAERS Safety Report 16830405 (Version 1)
Quarter: 2019Q3

REPORT INFORMATION
  Report Type: Spontaneous
  Country: US (occurrence: US)
  Receive Date: 20190920
  Receipt Date: 20190920
  Transmission Date: 20191005
  Serious: No
  Sender: FDA-Public Use
  Company Number: US-SHIRE-US201930714

PATIENT
  Sex: Male

DRUGS (1)
  1. XIIDRA [Suspect]
     Active Substance: LIFITEGRAST
     Indication: EYE DISORDER
     Dosage: UNK
     Route: 047

REACTIONS (2)
  - Eye irritation [Unknown]
  - Expired product administered [Unknown]

NARRATIVE: CASE EVENT DATE: 20190913
